FAERS Safety Report 11552671 (Version 1)
Quarter: 2015Q3

REPORT INFORMATION
  Report Type: Spontaneous
  Country: US (occurrence: US)
  Receive Date: 20150925
  Receipt Date: 20150925
  Transmission Date: 20151125
  Serious: No
  Sender: FDA-Public Use
  Company Number: US-ASTRAZENECA-2015SE89280

PATIENT
  Age: 23696 Day
  Sex: Female
  Weight: 81.6 kg

DRUGS (6)
  1. LIPITOR [Concomitant]
     Active Substance: ATORVASTATIN CALCIUM
     Indication: RENAL DISORDER
  2. METFORMIN [Concomitant]
     Active Substance: METFORMIN HYDROCHLORIDE
     Indication: DIABETES MELLITUS
  3. LEVEMIR [Concomitant]
     Active Substance: INSULIN DETEMIR
     Indication: DIABETES MELLITUS
     Dosage: IU, 40 UNITS IN THE MORNING AND 50 UNITS AT NIGHT.
  4. BYDUREON [Suspect]
     Active Substance: EXENATIDE
     Indication: TYPE 2 DIABETES MELLITUS
     Route: 058
     Dates: start: 20150831
  5. ATENOL [Concomitant]
     Active Substance: ATENOLOL
     Indication: RENAL DISORDER
  6. SIMVASTATIN. [Concomitant]
     Active Substance: SIMVASTATIN
     Indication: BLOOD CHOLESTEROL ABNORMAL

REACTIONS (3)
  - Nervousness [Recovered/Resolved with Sequelae]
  - Injection site haemorrhage [Recovered/Resolved with Sequelae]
  - Depressed mood [Recovered/Resolved with Sequelae]

NARRATIVE: CASE EVENT DATE: 20150831
